FAERS Safety Report 8003081-1 (Version None)
Quarter: 2011Q4

REPORT INFORMATION
  Report Type: 
  Country: None (occurrence: None)
  Receive Date: 20111222
  Receipt Date: 20111220
  Transmission Date: 20120403
  Serious: Yes (Other)
  Sender: FDA-Public Use
  Company Number: US-BIOMARINP-002191

PATIENT
  Sex: Male

DRUGS (4)
  1. KUVAN [Suspect]
     Indication: PHENYLKETONURIA
     Route: 064
     Dates: end: 20110928
  2. OXYGEN [Concomitant]
  3. AMPICILLIN [Concomitant]
  4. GENTAMICIN [Concomitant]

REACTIONS (1)
  - NEONATAL RESPIRATORY DISTRESS SYNDROME [None]
